FAERS Safety Report 17852440 (Version 1)
Quarter: 2020Q2

REPORT INFORMATION
  Report Type: Spontaneous
  Country: US (occurrence: US)
  Receive Date: 20200603
  Receipt Date: 20200603
  Transmission Date: 20200714
  Serious: Yes (Hospitalization, Other)
  Sender: FDA-Public Use
  Company Number: US-AUROBINDO-AUR-APL-2020-026188

PATIENT
  Age: 25 Year
  Sex: Female

DRUGS (6)
  1. FUROSEMIDE. [Suspect]
     Active Substance: FUROSEMIDE
     Indication: FACE OEDEMA
     Dosage: UNK
     Route: 065
  2. MYCOPHENOLATE MOFETIL. [Concomitant]
     Active Substance: MYCOPHENOLATE MOFETIL
     Indication: SYSTEMIC LUPUS ERYTHEMATOSUS
     Dosage: UNK
     Route: 065
  3. FUROSEMIDE. [Suspect]
     Active Substance: FUROSEMIDE
     Indication: OEDEMA PERIPHERAL
  4. METHYLPREDNISOLONE. [Suspect]
     Active Substance: METHYLPREDNISOLONE
     Indication: OEDEMA PERIPHERAL
  5. MYCOPHENOLATE MOFETIL. [Concomitant]
     Active Substance: MYCOPHENOLATE MOFETIL
     Indication: LUPUS NEPHRITIS
  6. METHYLPREDNISOLONE. [Suspect]
     Active Substance: METHYLPREDNISOLONE
     Indication: FACE OEDEMA
     Dosage: UNK
     Route: 065

REACTIONS (14)
  - Hyponatraemia [Recovered/Resolved]
  - Apraxia [Unknown]
  - Gaze palsy [Unknown]
  - Generalised tonic-clonic seizure [Unknown]
  - Pneumonia [Unknown]
  - Hypertension [Unknown]
  - Anaemia [Unknown]
  - Somnolence [Unknown]
  - Asthenia [Unknown]
  - Hypoxia [Unknown]
  - Ophthalmoplegia [Unknown]
  - Thrombocytopenia [Unknown]
  - Renal failure [Unknown]
  - Nystagmus [Unknown]
